FAERS Safety Report 24149287 (Version 3)
Quarter: 2024Q3

REPORT INFORMATION
  Report Type: Spontaneous
  Country: US (occurrence: US)
  Receive Date: 20240730
  Receipt Date: 20240921
  Transmission Date: 20241017
  Serious: No
  Sender: ROCHE
  Company Number: US-ROCHE-10000013750

PATIENT
  Age: 50 Year
  Sex: Female
  Weight: 92.99 kg

DRUGS (3)
  1. XOLAIR [Suspect]
     Active Substance: OMALIZUMAB
     Indication: Urticaria
     Route: 065
     Dates: start: 20240503
  2. XOLAIR [Suspect]
     Active Substance: OMALIZUMAB
     Indication: Systemic lupus erythematosus
  3. XOLAIR [Suspect]
     Active Substance: OMALIZUMAB
     Indication: Sjogren^s syndrome

REACTIONS (4)
  - Product complaint [Unknown]
  - Antinuclear antibody positive [Unknown]
  - Blood immunoglobulin G increased [Unknown]
  - Thermal burn [Unknown]

NARRATIVE: CASE EVENT DATE: 20240503
